FAERS Safety Report 8593536-3 (Version None)
Quarter: 2012Q3

REPORT INFORMATION
  Report Type: 
  Country: None (occurrence: None)
  Receive Date: 20120814
  Receipt Date: 20120808
  Transmission Date: 20120928
  Serious: No
  Sender: FDA-Public Use
  Company Number: US-B.I. PHARMACEUTICALS,INC./RIDGEFIELD-2012-BP-17902BP

PATIENT
  Sex: Male

DRUGS (5)
  1. SIMVASTATIN [Concomitant]
     Dosage: 20 MG
     Route: 048
     Dates: start: 20090101
  2. SPIRIVA [Suspect]
     Dosage: 18 MCG
     Route: 055
     Dates: start: 20120101
  3. SPIRIVA [Suspect]
     Dosage: 18 MCG
     Route: 048
     Dates: start: 20120808, end: 20120808
  4. IPRATROPIUM NASAL SPRAY [Concomitant]
     Route: 045
  5. FLONASE [Concomitant]
     Route: 045
     Dates: start: 20120101

REACTIONS (1)
  - INCORRECT ROUTE OF DRUG ADMINISTRATION [None]
